FAERS Safety Report 6392298-8 (Version None)
Quarter: 2009Q4

REPORT INFORMATION
  Report Type: 
  Country: None (occurrence: None)
  Receive Date: 20091007
  Receipt Date: 20090928
  Transmission Date: 20100525
  Serious: Yes (Other)
  Sender: FDA-Public Use
  Company Number: FR-ELI_LILLY_AND_COMPANY-FR200909006593

PATIENT
  Sex: Female

DRUGS (3)
  1. ALIMTA [Suspect]
     Dosage: UNK, UNKNOWN
     Route: 065
     Dates: start: 20090801
  2. CISPLATIN [Concomitant]
     Dosage: UNK, UNKNOWN
     Route: 065
  3. FOLIC ACID [Concomitant]
     Dosage: UNK, UNKNOWN
     Route: 065

REACTIONS (1)
  - SKIN TOXICITY [None]
